FAERS Safety Report 17063953 (Version 1)
Quarter: 2019Q4

REPORT INFORMATION
  Report Type: Spontaneous
  Country: JP (occurrence: JP)
  Receive Date: 20191122
  Receipt Date: 20191122
  Transmission Date: 20200122
  Serious: Yes (Other)
  Sender: FDA-Public Use
  Company Number: NVSJ2019JP003878

PATIENT
  Age: 75 Year
  Sex: Male

DRUGS (1)
  1. NILOTINIB [Suspect]
     Active Substance: NILOTINIB
     Indication: CHRONIC MYELOID LEUKAEMIA
     Dosage: 300 MG
     Route: 065

REACTIONS (5)
  - Ileus [Unknown]
  - Urinary retention [Unknown]
  - Pyelonephritis [Unknown]
  - Second primary malignancy [Unknown]
  - Prostate cancer [Unknown]
